FAERS Safety Report 26179720 (Version 1)
Quarter: 2025Q4

REPORT INFORMATION
  Report Type: Other
  Country: NP (occurrence: NP)
  Receive Date: 20251219
  Receipt Date: 20251219
  Transmission Date: 20260119
  Serious: Yes (Hospitalization, Other)
  Sender: ANI
  Company Number: NP-ANIPHARMA-035566

PATIENT
  Sex: Female

DRUGS (1)
  1. MISOPROSTOL [Suspect]
     Active Substance: MISOPROSTOL
     Indication: Retained products of conception

REACTIONS (1)
  - Pulmonary oedema [Unknown]
